FAERS Safety Report 12559768 (Version 1)
Quarter: 2016Q3

REPORT INFORMATION
  Report Type: Spontaneous
  Country: US (occurrence: None)
  Receive Date: 20160714
  Receipt Date: 20160714
  Transmission Date: 20161109
  Serious: Yes (Other)
  Sender: FDA-Public Use
  Company Number: None

PATIENT
  Age: 70 Year
  Sex: Female
  Weight: 79.5 kg

DRUGS (1)
  1. BETASERON [Suspect]
     Active Substance: INTERFERON BETA-1B
     Indication: MULTIPLE SCLEROSIS
     Dosage: 0.25MG EVERY OTHER WEEK??DATES: 09/26/2016
     Route: 058

REACTIONS (3)
  - Depressed mood [None]
  - Drug dose omission [None]
  - Depression [None]

NARRATIVE: CASE EVENT DATE: 20160512
